FAERS Safety Report 19010735 (Version 1)
Quarter: 2021Q1

REPORT INFORMATION
  Report Type: Spontaneous
  Country: CN (occurrence: CN)
  Receive Date: 20210315
  Receipt Date: 20210315
  Transmission Date: 20210420
  Serious: Yes (Other)
  Sender: FDA-Public Use
  Company Number: CN-009507513-2103CHN003064

PATIENT
  Age: 73 Year
  Sex: Female

DRUGS (4)
  1. TS?1 [Concomitant]
     Active Substance: GIMERACIL\OTERACIL\TEGAFUR
     Indication: HEPATOCELLULAR CARCINOMA
  2. HERCEPTIN [Concomitant]
     Active Substance: TRASTUZUMAB
     Indication: HEPATOCELLULAR CARCINOMA
     Dosage: UNK
  3. IPILIMUMAB [Suspect]
     Active Substance: IPILIMUMAB
     Indication: HEPATOCELLULAR CARCINOMA
     Dosage: UNK
  4. PEMBROLIZUMAB. [Suspect]
     Active Substance: PEMBROLIZUMAB
     Indication: HEPATOCELLULAR CARCINOMA
     Dosage: UNK

REACTIONS (1)
  - Endometrial cancer [Unknown]
